FAERS Safety Report 11617793 (Version 1)
Quarter: 2015Q4

REPORT INFORMATION
  Report Type: Spontaneous
  Country: US (occurrence: US)
  Receive Date: 20151009
  Receipt Date: 20151009
  Transmission Date: 20160304
  Serious: Yes (Disabling, Other)
  Sender: FDA-Public Use
  Company Number: CHPA2015US011476

PATIENT
  Age: 8 Decade
  Sex: Female

DRUGS (1)
  1. KERI LOTION [Suspect]
     Active Substance: LANOLIN\MINERAL OIL
     Indication: RELAXATION THERAPY
     Dosage: UNK
     Route: 061

REACTIONS (9)
  - Feeling abnormal [Recovered/Resolved]
  - Cartilage injury [Unknown]
  - Accident [Unknown]
  - Joint injury [Unknown]
  - Herpes zoster [Unknown]
  - Gait disturbance [Not Recovered/Not Resolved]
  - Syncope [Recovered/Resolved]
  - Liver disorder [Unknown]
  - Off label use [Unknown]
